FAERS Safety Report 6217099-2 (Version None)
Quarter: 2009Q2

REPORT INFORMATION
  Report Type: 
  Country: None (occurrence: None)
  Receive Date: 20090606
  Receipt Date: 20090524
  Transmission Date: 20091009
  Serious: Yes (Other)
  Sender: FDA-Public Use
  Company Number: US-PFIZER INC-2009217760

PATIENT
  Sex: Male
  Weight: 63.492 kg

DRUGS (1)
  1. CHANTIX [Suspect]
     Indication: SMOKING CESSATION THERAPY
     Dosage: UNK
     Dates: start: 20090501

REACTIONS (2)
  - BIPOLAR I DISORDER [None]
  - DEPRESSION [None]
